FAERS Safety Report 7392749-6 (Version None)
Quarter: 2011Q2

REPORT INFORMATION
  Report Type: 
  Country: None (occurrence: None)
  Receive Date: 20110404
  Receipt Date: 20110330
  Transmission Date: 20111010
  Serious: Yes (Death, Life-Threatening, Hospitalization)
  Sender: FDA-Public Use
  Company Number: CN-ASTRAZENECA-2009SE02557

PATIENT
  Age: 24244 Day
  Sex: Male
  Weight: 65 kg

DRUGS (2)
  1. STUDY PROCEDURE [Suspect]
     Indication: NON-SMALL CELL LUNG CANCER
     Route: 065
  2. GEFITINIB [Suspect]
     Indication: NON-SMALL CELL LUNG CANCER
     Route: 048
     Dates: start: 20090417, end: 20090609

REACTIONS (1)
  - PNEUMONIA [None]
